FAERS Safety Report 20912407 (Version 1)
Quarter: 2022Q2

REPORT INFORMATION
  Report Type: Other
  Country: None (occurrence: GB)
  Receive Date: 20220603
  Receipt Date: 20220603
  Transmission Date: 20220720
  Serious: Yes (Other)
  Sender: FDA-Public Use
  Company Number: GB-Appco Pharma LLC-2129467

PATIENT
  Age: 5 Year
  Sex: Female
  Weight: 16 kg

DRUGS (4)
  1. LAMIVUDINE [Suspect]
     Active Substance: LAMIVUDINE
     Indication: HIV infection
     Route: 065
  2. RALTEGRAVIR [Suspect]
     Active Substance: RALTEGRAVIR
     Route: 065
  3. ABACAVIR [Suspect]
     Active Substance: ABACAVIR
     Route: 065
  4. DOLUTEGRAVIR [Suspect]
     Active Substance: DOLUTEGRAVIR
     Route: 065

REACTIONS (2)
  - Myositis [Recovered/Resolved]
  - Drug ineffective [Unknown]
